FAERS Safety Report 7052708-X (Version None)
Quarter: 2010Q4

REPORT INFORMATION
  Report Type: 
  Country: None (occurrence: None)
  Receive Date: 20101019
  Receipt Date: 20101007
  Transmission Date: 20110411
  Serious: Yes (Other)
  Sender: FDA-Public Use
  Company Number: IT-GENENTECH-308066

PATIENT
  Age: 62 Year
  Sex: Female

DRUGS (1)
  1. RANIBIZUMAB [Suspect]
     Indication: OPTIC ISCHAEMIC NEUROPATHY
     Route: 031

REACTIONS (2)
  - OPTIC ATROPHY [None]
  - RETINAL PIGMENTATION [None]
